FAERS Safety Report 7776387-9 (Version None)
Quarter: 2011Q3

REPORT INFORMATION
  Report Type: 
  Country: None (occurrence: None)
  Receive Date: 20110926
  Receipt Date: 20110914
  Transmission Date: 20111222
  Serious: Yes (Hospitalization, Other)
  Sender: FDA-Public Use
  Company Number: FR-PFIZER INC-2011225918

PATIENT
  Age: 80 Year
  Sex: Male

DRUGS (11)
  1. ATARAX [Concomitant]
     Dosage: 100 MG DAILY
     Route: 048
  2. PLAVIX [Concomitant]
     Dosage: 75 MG, 1X/DAY
     Route: 048
  3. OMEPRAZOLE [Concomitant]
     Dosage: 20 MG, 1X/DAY
     Route: 048
  4. LEVOTHYROXINE SODIUM [Concomitant]
     Dosage: 25 UG, 1X/DAY
     Route: 048
  5. CORDARONE [Suspect]
     Indication: PRODUCT USED FOR UNKNOWN INDICATION
     Dosage: 200 MG, DAILY DOSE UNSPECIFIED
     Route: 048
     Dates: start: 20100601, end: 20100901
  6. ALFUZOSIN HCL [Concomitant]
     Dosage: 10 MG, 1X/DAY
     Route: 048
  7. NITROGLYCERIN [Concomitant]
     Dosage: 1 PATCH DAILY
  8. DRONEDARONE HCL [Suspect]
     Dosage: 400MG DAILY
     Route: 048
     Dates: start: 20101101, end: 20110729
  9. INDAPAMIDE [Concomitant]
     Dosage: 1.5 MG, 1X/DAY
     Route: 048
  10. IKOREL [Concomitant]
     Dosage: 20 MG, 3X/DAY
     Route: 048
  11. RAMIPRIL [Concomitant]
     Dosage: 10 MG, 1X/DAY
     Route: 048

REACTIONS (1)
  - CHOLESTASIS [None]
